FAERS Safety Report 15498953 (Version 2)
Quarter: 2018Q4

REPORT INFORMATION
  Report Type: Spontaneous
  Country: FR (occurrence: FR)
  Receive Date: 20181015
  Receipt Date: 20181107
  Transmission Date: 20190205
  Serious: Yes (Other)
  Sender: FDA-Public Use
  Company Number: FR-FERRINGPH-2018FE05538

PATIENT

DRUGS (3)
  1. CETROTIDE [Suspect]
     Active Substance: CETRORELIX ACETATE
     Indication: IN VITRO FERTILISATION
     Dosage: 1 DF, DAILY
     Route: 058
     Dates: start: 20180701, end: 20180704
  2. BEAGYNE [Suspect]
     Active Substance: FLUCONAZOLE
     Indication: VULVOVAGINAL PRURITUS
     Dosage: 150 MG, ONCE/SINGLE
     Route: 048
     Dates: start: 201807
  3. MENOPUR [Suspect]
     Active Substance: FOLLITROPIN\LUTEINIZING HORMONE
     Indication: IN VITRO FERTILISATION
     Dosage: 300 IU, DAILY
     Route: 058
     Dates: start: 20180626, end: 20180704

REACTIONS (2)
  - Liver function test abnormal [Recovered/Resolved]
  - Vomiting [Recovered/Resolved]

NARRATIVE: CASE EVENT DATE: 20180705
